FAERS Safety Report 6146290-9 (Version None)
Quarter: 2009Q2

REPORT INFORMATION
  Report Type: 
  Country: None (occurrence: None)
  Receive Date: 20090403
  Receipt Date: 20090320
  Transmission Date: 20091009
  Serious: No
  Sender: FDA-Public Use
  Company Number: SPI200900055

PATIENT
  Age: 54 Year
  Sex: Female
  Weight: 72.6 kg

DRUGS (1)
  1. AMITIZA [Suspect]
     Indication: CONSTIPATION
     Dosage: 24 MCG, SINGLE, ORAL
     Route: 048
     Dates: start: 20090201, end: 20090201

REACTIONS (3)
  - ANXIETY [None]
  - DYSPNOEA [None]
  - PALPITATIONS [None]
